FAERS Safety Report 6771848-3 (Version None)
Quarter: 2010Q2

REPORT INFORMATION
  Report Type: 
  Country: None (occurrence: None)
  Receive Date: 20100616
  Receipt Date: 20100609
  Transmission Date: 20101027
  Serious: Yes (Hospitalization)
  Sender: FDA-Public Use
  Company Number: FR-JNJFOC-20100603034

PATIENT
  Sex: Male

DRUGS (7)
  1. RISPERDAL [Suspect]
     Indication: ANXIETY
     Route: 048
  2. HAVLANE [Suspect]
     Indication: DRUG USE FOR UNKNOWN INDICATION
     Route: 048
  3. XANAX [Suspect]
     Indication: DRUG USE FOR UNKNOWN INDICATION
     Route: 048
  4. CITALOPRAM HYDROBROMIDE [Suspect]
     Indication: DRUG USE FOR UNKNOWN INDICATION
     Route: 065
  5. EXELON [Concomitant]
     Route: 065
  6. SEGLOR [Concomitant]
     Route: 065
  7. LORAZEPAM [Concomitant]
     Route: 065

REACTIONS (3)
  - AGGRESSION [None]
  - AGITATION [None]
  - WITHDRAWAL SYNDROME [None]
